FAERS Safety Report 7557195-0 (Version None)
Quarter: 2011Q2

REPORT INFORMATION
  Report Type: 
  Country: None (occurrence: None)
  Receive Date: 20110616
  Receipt Date: 20110616
  Transmission Date: 20111010
  Serious: Yes (Other)
  Sender: FDA-Public Use
  Company Number: None

PATIENT
  Age: 56 Year
  Sex: Male
  Weight: 76.2043 kg

DRUGS (9)
  1. COMBIVIR [Suspect]
     Indication: HIV INFECTION
     Dosage: ONE PO BID MANY YEARS
     Route: 048
  2. SUSTIVA [Concomitant]
  3. ASPIRIN [Concomitant]
  4. CITALOPRAM HYDROBROMIDE [Concomitant]
  5. NOVOLIN 70/30 [Concomitant]
  6. AMLODIPINE [Concomitant]
  7. M.V.I. [Concomitant]
  8. DEPAKOTE ER [Concomitant]
  9. TENOFOVIR DISOPROXIL FUMARATE [Concomitant]

REACTIONS (2)
  - ANAEMIA MACROCYTIC [None]
  - TOXICITY TO VARIOUS AGENTS [None]
